FAERS Safety Report 8588793-3 (Version None)
Quarter: 2012Q3

REPORT INFORMATION
  Report Type: 
  Country: None (occurrence: None)
  Receive Date: 20120813
  Receipt Date: 20120810
  Transmission Date: 20120928
  Serious: Yes (Other)
  Sender: FDA-Public Use
  Company Number: PHHY2012NL069320

PATIENT
  Sex: Male

DRUGS (3)
  1. ZOMETA [Suspect]
     Indication: PROSTATE CANCER METASTATIC
     Dosage: 4 MG/100ML ONCE PER 28 DAYS
     Dates: start: 20110221
  2. ZOMETA [Suspect]
     Dosage: 4 MG/100ML ONCE PER 28 DAYS
     Dates: start: 20120810, end: 20120810
  3. ZOMETA [Suspect]
     Dosage: 4 MG/100ML ONCE PER 28 DAYS
     Dates: start: 20120716

REACTIONS (1)
  - TERMINAL STATE [None]
